FAERS Safety Report 9662495 (Version 2)
Quarter: 2013Q4

REPORT INFORMATION
  Report Type: Spontaneous
  Country: US (occurrence: US)
  Receive Date: 20131031
  Receipt Date: 20131031
  Transmission Date: 20140711
  Serious: No
  Sender: FDA-Public Use
  Company Number: US-PURDUE-USA-2010-0049202

PATIENT
  Sex: Female

DRUGS (3)
  1. OXYCONTIN (NDA 22-272) [Suspect]
     Indication: PAIN
     Dosage: 20 MG, Q12H
     Dates: start: 20101009
  2. OXYCONTIN (NDA 22-272) [Suspect]
     Dosage: 30 MG, UNK
  3. LORTAB                             /00607101/ [Concomitant]
     Indication: PRODUCT USED FOR UNKNOWN INDICATION

REACTIONS (3)
  - Inadequate analgesia [Unknown]
  - Somnolence [Recovered/Resolved]
  - Pruritus [Recovered/Resolved]
